FAERS Safety Report 20087724 (Version 2)
Quarter: 2022Q1

REPORT INFORMATION
  Report Type: Spontaneous
  Country: US (occurrence: US)
  Receive Date: 20211118
  Receipt Date: 20220323
  Transmission Date: 20220424
  Serious: Yes (Other)
  Sender: FDA-Public Use
  Company Number: US-ELI_LILLY_AND_COMPANY-US202111004894

PATIENT
  Sex: Male

DRUGS (1)
  1. TRULICITY [Suspect]
     Active Substance: DULAGLUTIDE
     Indication: Blood glucose abnormal
     Dosage: 1.5 MG, WEEKLY (1/W)
     Route: 058
     Dates: start: 2017

REACTIONS (2)
  - Cerebrovascular accident [Not Recovered/Not Resolved]
  - Slow speech [Unknown]

NARRATIVE: CASE EVENT DATE: 20200101
